FAERS Safety Report 13356746 (Version 5)
Quarter: 2017Q2

REPORT INFORMATION
  Report Type: Spontaneous
  Country: JP (occurrence: JP)
  Receive Date: 20170321
  Receipt Date: 20170613
  Transmission Date: 20170830
  Serious: Yes (Hospitalization, Other)
  Sender: FDA-Public Use
  Company Number: JP-TEVA-748487ISR

PATIENT
  Age: 66 Year
  Sex: Male

DRUGS (9)
  1. FILGRASTIM BS INJ. ^NK^ [Suspect]
     Active Substance: FILGRASTIM
     Indication: NEUTROPENIA
     Dosage: 75 MICROGRAM DAILY;
     Route: 058
     Dates: start: 20170224, end: 20170302
  2. ONCOVIN [Concomitant]
     Active Substance: VINCRISTINE SULFATE
     Dosage: 1.8 MILLIGRAM DAILY;
     Dates: start: 20170217, end: 20170217
  3. DOXORUBICIN HYDROCHLORIDE. [Concomitant]
     Active Substance: DOXORUBICIN HYDROCHLORIDE
     Dosage: 65 MILLIGRAM DAILY;
     Dates: start: 20170217, end: 20170217
  4. NEUTROGIN [Concomitant]
     Active Substance: LENOGRASTIM
     Dosage: 100 MICROGRAM DAILY;
     Route: 058
     Dates: start: 20170217, end: 20170223
  5. LANSOPRAZOLE. [Concomitant]
     Active Substance: LANSOPRAZOLE
     Dosage: 15 MILLIGRAM DAILY;
     Route: 048
     Dates: start: 20170306
  6. ENDOXAN [Concomitant]
     Active Substance: CYCLOPHOSPHAMIDE
     Dosage: 980 MILLIGRAM DAILY;
     Dates: start: 20170217, end: 20170217
  7. BACTRAMIN [Concomitant]
     Active Substance: SULFAMETHOXAZOLE\TRIMETHOPRIM
     Dosage: 4 DOSAGE FORMS DAILY;
     Route: 048
     Dates: start: 20170306
  8. PREDONINE [Concomitant]
     Active Substance: PREDNISOLONE
     Dosage: 100 MILLIGRAM DAILY;
     Route: 048
     Dates: start: 20170217, end: 20170221
  9. ALOXI [Concomitant]
     Active Substance: PALONOSETRON HYDROCHLORIDE
     Dosage: .75 MILLIGRAM DAILY;
     Dates: start: 20170217, end: 20170217

REACTIONS (2)
  - Pyrexia [Recovered/Resolved]
  - Interstitial lung disease [Recovering/Resolving]

NARRATIVE: CASE EVENT DATE: 20170226
